FAERS Safety Report 12361116 (Version 1)
Quarter: 2016Q2

REPORT INFORMATION
  Report Type: Spontaneous
  Country: US (occurrence: US)
  Receive Date: 20160512
  Receipt Date: 20160512
  Transmission Date: 20160815
  Serious: No
  Sender: FDA-Public Use
  Company Number: US-BAUSCH-BL-2015-017326

PATIENT
  Sex: Female

DRUGS (4)
  1. SYNTHROID [Concomitant]
     Active Substance: LEVOTHYROXINE SODIUM
     Indication: PRODUCT USED FOR UNKNOWN INDICATION
  2. VITAMIN D [Concomitant]
     Active Substance: CHOLECALCIFEROL
     Indication: PRODUCT USED FOR UNKNOWN INDICATION
  3. LATANOPROST OPHTHALMIC SOLUTION 0.005% [Suspect]
     Active Substance: LATANOPROST
     Indication: GLAUCOMA
     Dosage: BOTH EYES EVERY DAY
     Route: 047
     Dates: start: 20150629, end: 20150628
  4. LATANOPROST SANDOZ [Suspect]
     Active Substance: LATANOPROST
     Indication: GLAUCOMA
     Dosage: BOTH EYES EVERY DAY
     Route: 047
     Dates: start: 20150612, end: 20150628

REACTIONS (9)
  - Dysgeusia [Not Recovered/Not Resolved]
  - Eyelid oedema [Not Recovered/Not Resolved]
  - Eye disorder [Not Recovered/Not Resolved]
  - Muscle twitching [Recovered/Resolved]
  - Drug ineffective [Not Recovered/Not Resolved]
  - Eye pain [Recovered/Resolved]
  - Nervousness [Not Recovered/Not Resolved]
  - Ocular hyperaemia [Recovered/Resolved]
  - Dry mouth [Not Recovered/Not Resolved]
